FAERS Safety Report 9548816 (Version 1)
Quarter: 2013Q2

REPORT INFORMATION
  Report Type: Spontaneous
  Country: US (occurrence: None)
  Receive Date: 20130627
  Receipt Date: 20130627
  Transmission Date: 20140414
  Serious: Yes (Other)
  Sender: FDA-Public Use
  Company Number: 1000045330

PATIENT
  Age: 37 Year
  Sex: Female

DRUGS (1)
  1. LINZESS [Suspect]
     Dosage: 290MCG (290 MCG, 1 IN 1
     Route: 048
     Dates: start: 201304, end: 2013

REACTIONS (3)
  - Diarrhoea [None]
  - Flatulence [None]
  - Abdominal distension [None]
